FAERS Safety Report 7007513-7 (Version None)
Quarter: 2010Q3

REPORT INFORMATION
  Report Type: 
  Country: None (occurrence: None)
  Receive Date: 20100920
  Receipt Date: 20100903
  Transmission Date: 20110219
  Serious: Yes (Disabling, Other)
  Sender: FDA-Public Use
  Company Number: ACO_02103_2010

PATIENT
  Age: 38 Year
  Sex: Female
  Weight: 47.6277 kg

DRUGS (4)
  1. AMPYRA [Suspect]
     Indication: GAIT DISTURBANCE
     Dosage: 10 MG BID [8AM/8PM] ORAL
     Route: 048
     Dates: start: 20100830
  2. TYSABRI [Concomitant]
  3. CLONAZEPAM [Concomitant]
  4. RITALIN [Concomitant]

REACTIONS (6)
  - ACTIVITIES OF DAILY LIVING IMPAIRED [None]
  - CONDITION AGGRAVATED [None]
  - DRUG DOSE OMISSION [None]
  - GRIP STRENGTH DECREASED [None]
  - MUSCULAR WEAKNESS [None]
  - TREMOR [None]
